FAERS Safety Report 4650659-9 (Version None)
Quarter: 2005Q2

REPORT INFORMATION
  Report Type: 
  Country: None (occurrence: None)
  Receive Date: 20050429
  Receipt Date: 20050414
  Transmission Date: 20051028
  Serious: Yes (Death, Hospitalization)
  Sender: FDA-Public Use
  Company Number: 10869

PATIENT
  Age: 62 Year
  Sex: Male

DRUGS (6)
  1. PACLITAXEL [Suspect]
     Dosage: 175 MG/M2 DAILY IV
     Route: 042
  2. TOPOTECAN [Suspect]
     Dosage: 1 MG/M2 DAILY IV
     Route: 042
  3. FILGRASTIM [Suspect]
     Dosage: 5 MCG/KG DAILY SC
     Route: 058
  4. DEXAMETHASONE [Concomitant]
  5. CIMETIDINE [Concomitant]
  6. DIPHENHYDRAMINE HCL [Concomitant]

REACTIONS (2)
  - FEBRILE NEUTROPENIA [None]
  - LUNG INFILTRATION [None]
